FAERS Safety Report 5617255-8 (Version None)
Quarter: 2008Q1

REPORT INFORMATION
  Report Type: 
  Country: None (occurrence: None)
  Receive Date: 20080204
  Receipt Date: 20080123
  Transmission Date: 20080703
  Serious: Yes (Hospitalization, Disabling, Other)
  Sender: FDA-Public Use
  Company Number: 2007-03194

PATIENT
  Age: 75 Year
  Sex: Male
  Weight: 58 kg

DRUGS (16)
  1. VELCADE [Suspect]
     Indication: MULTIPLE MYELOMA
     Dosage: 2.20 MG, INTRAVENOUS
     Route: 042
     Dates: start: 20070703, end: 20070817
  2. DEXAMETHASONE TAB [Concomitant]
  3. ALFAROL (ALFACALCIDOL) [Concomitant]
  4. PURSENNID (SENNA LEAF) [Concomitant]
  5. MAGNESIUM OXIDE (MAGNESIUM OXIDE) [Concomitant]
  6. LANSOPRAZOLE [Concomitant]
  7. KYTRIL [Concomitant]
  8. POLYETHYLENE GLYCOL (MACROGOL) [Concomitant]
  9. LOPERAMIDE HCL [Concomitant]
  10. LAXOBERON (SODIUM PICOSULFATE) [Concomitant]
  11. NITROGLYCERIN [Concomitant]
  12. CARBENIN (BETAMIPRON, PANIPENEM) [Concomitant]
  13. TARGOCID [Concomitant]
  14. GANCICLOVIR [Concomitant]
  15. AMIKACIN SULFATE [Concomitant]
  16. PLATELETS [Concomitant]

REACTIONS (15)
  - ANOREXIA [None]
  - ANTIBODY TEST POSITIVE [None]
  - BRONCHIECTASIS [None]
  - CONDITION AGGRAVATED [None]
  - CONSTIPATION [None]
  - DIARRHOEA [None]
  - HYPERTENSION [None]
  - INTERSTITIAL LUNG DISEASE [None]
  - MOVEMENT DISORDER [None]
  - NEUROGENIC BLADDER [None]
  - NEUROPATHY PERIPHERAL [None]
  - PLATELET COUNT DECREASED [None]
  - PLEURAL EFFUSION [None]
  - PYREXIA [None]
  - SYNCOPE [None]
